FAERS Safety Report 8434713-1 (Version None)
Quarter: 2012Q2

REPORT INFORMATION
  Report Type: 
  Country: None (occurrence: None)
  Receive Date: 20120323
  Receipt Date: 20111115
  Transmission Date: 20120825
  Serious: Yes (Disabling)
  Sender: FDA-Public Use
  Company Number: 163-21880-11070475

PATIENT
  Age: 70 Year
  Sex: Male

DRUGS (4)
  1. VELCADE [Suspect]
     Indication: MULTIPLE MYELOMA
     Dosage: 1.3 MG/M2, D1, 4, 8, 11, IV
     Route: 042
     Dates: start: 20110412, end: 20110601
  2. DECADRON [Concomitant]
  3. REVLIMID [Suspect]
     Indication: MULTIPLE MYELOMA
     Dosage: 25 MG, 1 IN 1 D, PO
     Route: 048
     Dates: start: 20110412, end: 20110606
  4. ZOMETA [Concomitant]

REACTIONS (6)
  - MYALGIA [None]
  - ANAEMIA [None]
  - PRURITUS [None]
  - OEDEMA PERIPHERAL [None]
  - DYSPNOEA [None]
  - NEUROPATHY PERIPHERAL [None]
